FAERS Safety Report 10816548 (Version 2)
Quarter: 2017Q4

REPORT INFORMATION
  Report Type: Spontaneous
  Country: US (occurrence: US)
  Receive Date: 20150218
  Receipt Date: 20171117
  Transmission Date: 20180320
  Serious: Yes (Other)
  Sender: FDA-Public Use
  Company Number: US-PERRIGO-15US001782

PATIENT
  Age: 53 Year
  Sex: Male
  Weight: 104.31 kg

DRUGS (2)
  1. PHENYLEPHRINE HYDROCHLORIDE 1% 648 [Suspect]
     Active Substance: PHENYLEPHRINE HYDROCHLORIDE
     Indication: NASAL CONGESTION
     Dosage: A FEW SPRAYS, QD
     Route: 045
     Dates: start: 201402, end: 2015
  2. PHENYLEPHRINE HYDROCHLORIDE 1% 648 [Suspect]
     Active Substance: PHENYLEPHRINE HYDROCHLORIDE
     Dosage: 2 TO 3 SPRAYS IN EACH NOSTRIL, QD, PRN
     Route: 045
     Dates: start: 2015

REACTIONS (6)
  - Incorrect drug administration duration [Unknown]
  - Retching [Unknown]
  - Anosmia [Unknown]
  - Dependence [Unknown]
  - Sinus disorder [Unknown]
  - Condition aggravated [Unknown]

NARRATIVE: CASE EVENT DATE: 2014
